FAERS Safety Report 4909264-9 (Version None)
Quarter: 2006Q1

REPORT INFORMATION
  Report Type: 
  Country: None (occurrence: None)
  Receive Date: 20060213
  Receipt Date: 20060131
  Transmission Date: 20060701
  Serious: Yes (Other)
  Sender: FDA-Public Use
  Company Number: PHBS2006IL01944

PATIENT
  Age: 32 Year
  Sex: Male

DRUGS (6)
  1. LAMOTRIGINE [Suspect]
     Indication: BIPOLAR I DISORDER
     Dosage: 25 MG/DAY
     Route: 065
  2. LAMOTRIGINE [Suspect]
     Dosage: 200 MG/DAY
     Route: 065
  3. LAMOTRIGINE [Suspect]
     Dosage: 50 MG/DAY
     Route: 065
  4. QUETIAPINE [Suspect]
     Indication: BIPOLAR I DISORDER
     Dosage: 600 MG/DAY
     Route: 065
  5. QUETIAPINE [Suspect]
     Dosage: 800 MG/DAY
     Route: 065
  6. CARBAMAZEPINE [Suspect]
     Indication: BIPOLAR I DISORDER
     Dosage: 750 MG/DAY
     Route: 065

REACTIONS (6)
  - DELUSION OF GRANDEUR [None]
  - DEPRESSION [None]
  - EUPHORIC MOOD [None]
  - MANIA [None]
  - MOOD ALTERED [None]
  - SUICIDAL IDEATION [None]
